FAERS Safety Report 18845019 (Version 1)
Quarter: 2021Q1

REPORT INFORMATION
  Report Type: Report from Study
  Country: US (occurrence: US)
  Receive Date: 20210203
  Receipt Date: 20210203
  Transmission Date: 20210419
  Serious: No
  Sender: FDA-Public Use
  Company Number: US-EXELIXIS-CABO-20031724

PATIENT
  Sex: Male

DRUGS (3)
  1. CABOMETYX [Suspect]
     Active Substance: CABOZANTINIB S-MALATE
     Indication: RENAL CANCER
     Dosage: 60 MG
  2. CABOMETYX [Suspect]
     Active Substance: CABOZANTINIB S-MALATE
     Dosage: 40 MG
  3. CABOMETYX [Suspect]
     Active Substance: CABOZANTINIB S-MALATE
     Dosage: 20 MG

REACTIONS (14)
  - Hypersomnia [Unknown]
  - Abdominal discomfort [Unknown]
  - Glaucoma [Unknown]
  - Paraesthesia [Unknown]
  - Decreased appetite [Unknown]
  - Hypoacusis [Unknown]
  - Taste disorder [Unknown]
  - Confusional state [Unknown]
  - Nausea [Unknown]
  - Tooth disorder [Unknown]
  - Constipation [Unknown]
  - Blood pressure decreased [Unknown]
  - Blood urine present [Unknown]
  - Visual impairment [Unknown]
